FAERS Safety Report 22531821 (Version 1)
Quarter: 2023Q2

REPORT INFORMATION
  Report Type: Spontaneous
  Country: US (occurrence: US)
  Receive Date: 20230607
  Receipt Date: 20230607
  Transmission Date: 20230721
  Serious: Yes (Hospitalization, Other)
  Sender: FDA-Public Use
  Company Number: US-BIOVITRUM-2022US13743

PATIENT
  Age: 70 Year
  Sex: Male

DRUGS (2)
  1. KINERET [Suspect]
     Active Substance: ANAKINRA
     Indication: Gouty tophus
     Dosage: FREQUENCY ONCE DAILY
     Route: 058
     Dates: start: 202210
  2. KINERET [Suspect]
     Active Substance: ANAKINRA
     Dosage: FREQUENCY ONCE DAILY
     Route: 058
     Dates: start: 20221101

REACTIONS (4)
  - Intentional product misuse [Unknown]
  - Injection site pain [Unknown]
  - Thrombosis [Unknown]
  - Hypersensitivity [Unknown]

NARRATIVE: CASE EVENT DATE: 20221001
